FAERS Safety Report 12199106 (Version 1)
Quarter: 2016Q1

REPORT INFORMATION
  Report Type: Spontaneous
  Country: GR (occurrence: GR)
  Receive Date: 20160322
  Receipt Date: 20160322
  Transmission Date: 20160526
  Serious: Yes (Death)
  Sender: FDA-Public Use
  Company Number: GR-ACORDA-ACO_122276_2016

PATIENT
  Sex: Female

DRUGS (2)
  1. QUTENZA [Suspect]
     Active Substance: CAPSAICIN
     Indication: NEURALGIA
     Dosage: 1 PATCH, UNKNOWN FREQ
     Route: 003
     Dates: start: 20150318, end: 20150318
  2. QUTENZA [Suspect]
     Active Substance: CAPSAICIN
     Dosage: 1 PATCH, UNKNOWN FREQ
     Route: 003
     Dates: start: 20150702, end: 20150702

REACTIONS (1)
  - Death [Fatal]
